FAERS Safety Report 21985182 (Version 1)
Quarter: 2023Q1

REPORT INFORMATION
  Report Type: Spontaneous
  Country: US (occurrence: None)
  Receive Date: 20230209
  Receipt Date: 20230209
  Transmission Date: 20230417
  Serious: Yes (Hospitalization)
  Sender: FDA-Public Use
  Company Number: None

PATIENT
  Age: 49 Year
  Sex: Female

DRUGS (1)
  1. JADENU [Suspect]
     Active Substance: DEFERASIROX
     Dosage: OTHER QUANTITY : 1080;?FREQUENCY : DAILY;?
     Route: 048
     Dates: start: 202301

REACTIONS (9)
  - Heart rate increased [None]
  - Flushing [None]
  - Diarrhoea [None]
  - Dizziness [None]
  - Dizziness [None]
  - Nausea [None]
  - Ear discomfort [None]
  - Urticaria [None]
  - Wheezing [None]

NARRATIVE: CASE EVENT DATE: 20230208
